FAERS Safety Report 4874505-3 (Version None)
Quarter: 2006Q1

REPORT INFORMATION
  Report Type: 
  Country: None (occurrence: None)
  Receive Date: 20060104
  Receipt Date: 20060104
  Transmission Date: 20060701
  Serious: No
  Sender: FDA-Public Use
  Company Number: None

PATIENT
  Age: 64 Year
  Sex: Female

DRUGS (6)
  1. LEVAQUIN [Suspect]
     Indication: EAR INFECTION
     Dosage: 500 MG ORAL
     Route: 048
     Dates: start: 20051123, end: 20051214
  2. LEVAQUIN [Suspect]
     Indication: SINUSITIS
     Dosage: 500 MG ORAL
     Route: 048
     Dates: start: 20051123, end: 20051214
  3. VIVELLE [Concomitant]
  4. PROGESTERONE [Concomitant]
  5. CARDIAZEM [Concomitant]
  6. ATENALOL [Concomitant]

REACTIONS (6)
  - ERYTHEMA [None]
  - JOINT STIFFNESS [None]
  - JOINT SWELLING [None]
  - MUSCULOSKELETAL STIFFNESS [None]
  - SWELLING [None]
  - TENDONITIS [None]
